FAERS Safety Report 4373991-5 (Version None)
Quarter: 2004Q2

REPORT INFORMATION
  Report Type: 
  Country: None (occurrence: None)
  Receive Date: 20040603
  Receipt Date: 20040517
  Transmission Date: 20050107
  Serious: Yes (Life-Threatening)
  Sender: FDA-Public Use
  Company Number: GBS040514940

PATIENT
  Age: 58 Year
  Sex: Male

DRUGS (14)
  1. ZYPREXA [Suspect]
     Indication: SCHIZOPHRENIA
     Dosage: 20 MG/1 DAY
  2. CIPROFLOXACIN [Concomitant]
  3. HALOPERIDOL [Concomitant]
  4. ZOPICLONE [Concomitant]
  5. SENNA [Concomitant]
  6. WARFARIN SODIUM [Concomitant]
  7. ALBUTEROL SULFATE [Concomitant]
  8. IPRATROPIUM BROMIDE [Concomitant]
  9. BECLOMETHASONE DIPROPIONATE [Concomitant]
  10. MIL-PAR [Concomitant]
  11. PREDNISOLONE [Concomitant]
  12. ACETAMINOPHEN [Concomitant]
  13. CODEINE [Concomitant]
  14. TINZAPARIN [Concomitant]

REACTIONS (5)
  - COMA [None]
  - LOWER RESPIRATORY TRACT INFECTION [None]
  - OXYGEN SATURATION DECREASED [None]
  - RESPIRATORY RATE INCREASED [None]
  - SOMNOLENCE [None]
